FAERS Safety Report 4700231-7 (Version None)
Quarter: 2005Q2

REPORT INFORMATION
  Report Type: 
  Country: None (occurrence: None)
  Receive Date: 20050624
  Receipt Date: 20050624
  Transmission Date: 20051028
  Serious: No
  Sender: FDA-Public Use
  Company Number: None

PATIENT
  Sex: Male
  Weight: 99.7913 kg

DRUGS (2)
  1. PAROXETINE   40 MG   PAR [Suspect]
     Indication: SOCIAL PHOBIA
     Dosage: 40 MG    DAILY   ORAL
     Route: 048
     Dates: start: 20021001, end: 20050613
  2. MECLIZINE [Concomitant]

REACTIONS (4)
  - DRUG WITHDRAWAL SYNDROME [None]
  - MYALGIA [None]
  - PARAESTHESIA [None]
  - SENSORY DISTURBANCE [None]
